FAERS Safety Report 6123038-5 (Version None)
Quarter: 2009Q1

REPORT INFORMATION
  Report Type: 
  Country: None (occurrence: None)
  Receive Date: 20090318
  Receipt Date: 20090306
  Transmission Date: 20090719
  Serious: Yes (Other)
  Sender: FDA-Public Use
  Company Number: DE-AMGEN-STX337015

PATIENT
  Age: 35 Year
  Sex: Male

DRUGS (2)
  1. MIMPARA [Suspect]
     Indication: HYPERPARATHYROIDISM SECONDARY
  2. IMMUNOSUPPRESSANTS [Concomitant]

REACTIONS (1)
  - RENAL CELL CARCINOMA [None]
